FAERS Safety Report 8989857 (Version 2)
Quarter: 2013Q2

REPORT INFORMATION
  Report Type: Spontaneous
  Country: US (occurrence: US)
  Receive Date: 20121228
  Receipt Date: 20130429
  Transmission Date: 20140414
  Serious: Yes (Other)
  Sender: FDA-Public Use
  Company Number: US-GLAXOSMITHKLINE-A1006224A

PATIENT
  Age: 56 Year
  Sex: Male

DRUGS (3)
  1. ADVAIR [Suspect]
     Indication: EMPHYSEMA
     Dosage: 1PUFF PER DAY
     Route: 055
     Dates: start: 2005
  2. UNSPECIFIED MEDICATIONS [Concomitant]
     Indication: CARDIAC FAILURE
  3. SINGULAIR [Concomitant]

REACTIONS (5)
  - Pneumonia [Recovering/Resolving]
  - Dyspnoea [Recovering/Resolving]
  - Influenza [Recovering/Resolving]
  - Dehydration [Recovering/Resolving]
  - Underdose [Unknown]
